FAERS Safety Report 6213934-2 (Version None)
Quarter: 2009Q2

REPORT INFORMATION
  Report Type: 
  Country: None (occurrence: None)
  Receive Date: 20090604
  Receipt Date: 20090528
  Transmission Date: 20091009
  Serious: Yes (Other)
  Sender: FDA-Public Use
  Company Number: US-ASTRAZENECA-2009UW13674

PATIENT
  Age: 62 Year
  Sex: Female
  Weight: 63.5 kg

DRUGS (7)
  1. SYMBICORT [Suspect]
     Indication: WHEEZING
     Route: 055
  2. GABAPENTIN [Concomitant]
     Indication: VULVOVAGINAL PAIN
  3. VALTREX [Concomitant]
     Indication: VULVOVAGINAL PAIN
  4. ZYRTEC [Concomitant]
     Indication: HYPERSENSITIVITY
  5. SINGULAIR [Concomitant]
     Indication: HYPERSENSITIVITY
  6. MEDROL [Concomitant]
  7. ZITHROMAX [Concomitant]

REACTIONS (1)
  - CARDIAC DISORDER [None]
